FAERS Safety Report 8606226-5 (Version None)
Quarter: 2012Q3

REPORT INFORMATION
  Report Type: 
  Country: None (occurrence: None)
  Receive Date: 20120820
  Receipt Date: 19951212
  Transmission Date: 20120928
  Serious: Yes (Hospitalization, Other)
  Sender: FDA-Public Use
  Company Number: US-ROCHE-1101574

PATIENT
  Sex: Female

DRUGS (3)
  1. LIDOCAINE [Concomitant]
     Route: 040
  2. ACTIVASE [Suspect]
     Indication: ACUTE MYOCARDIAL INFARCTION
     Dates: start: 19950629
  3. MORPHINE [Concomitant]

REACTIONS (6)
  - ASTHENIA [None]
  - CHEST PAIN [None]
  - BLOOD POTASSIUM DECREASED [None]
  - VENTRICULAR EXTRASYSTOLES [None]
  - NAUSEA [None]
  - VOMITING [None]
